FAERS Safety Report 24560261 (Version 1)
Quarter: 2024Q4

REPORT INFORMATION
  Report Type: Spontaneous
  Country: US (occurrence: US)
  Receive Date: 20241029
  Receipt Date: 20241029
  Transmission Date: 20250114
  Serious: Yes (Hospitalization, Other)
  Sender: PRAXGEN PHARMACEUTICALS
  Company Number: US-PRAXGEN-2024PPLIT00057

PATIENT
  Age: 43 Year
  Sex: Male

DRUGS (2)
  1. METHYLPREDNISOLONE [Suspect]
     Active Substance: METHYLPREDNISOLONE
     Indication: Product used for unknown indication
     Route: 065
  2. MORPHINE [Concomitant]
     Active Substance: MORPHINE
     Indication: Pleuritic pain
     Route: 065

REACTIONS (2)
  - Acute respiratory failure [Unknown]
  - Septic shock [Unknown]
